FAERS Safety Report 16951021 (Version 1)
Quarter: 2019Q4

REPORT INFORMATION
  Report Type: Spontaneous
  Country: CA (occurrence: CA)
  Receive Date: 20191023
  Receipt Date: 20191023
  Transmission Date: 20200122
  Serious: Yes (Other)
  Sender: FDA-Public Use
  Company Number: CA-PFIZER INC-2019454314

PATIENT
  Age: 24 Year
  Sex: Female

DRUGS (3)
  1. EMEND [Interacting]
     Active Substance: APREPITANT
     Indication: PRODUCT USED FOR UNKNOWN INDICATION
     Dosage: 125 MG, UNK
     Route: 048
  2. EMEND [Interacting]
     Active Substance: APREPITANT
     Indication: NAUSEA
     Dosage: 80 MG, UNK
     Route: 048
  3. DILANTIN [Suspect]
     Active Substance: PHENYTOIN
     Indication: SEIZURE
     Dosage: UNK
     Route: 065

REACTIONS (3)
  - Seizure [Unknown]
  - Therapeutic product effect decreased [Unknown]
  - Drug interaction [Unknown]
